FAERS Safety Report 6845710-1 (Version None)
Quarter: 2010Q3

REPORT INFORMATION
  Report Type: 
  Country: None (occurrence: None)
  Receive Date: 20100715
  Receipt Date: 20070823
  Transmission Date: 20110219
  Serious: No
  Sender: FDA-Public Use
  Company Number: US-PFIZER INC-2007072029

PATIENT
  Sex: Female
  Weight: 45.5 kg

DRUGS (3)
  1. CHANTIX [Suspect]
     Indication: SMOKING CESSATION THERAPY
     Dates: start: 20070701, end: 20070815
  2. XANAX [Concomitant]
  3. MOTRIN [Concomitant]

REACTIONS (8)
  - ABNORMAL BEHAVIOUR [None]
  - BALANCE DISORDER [None]
  - COMMUNICATION DISORDER [None]
  - DECREASED APPETITE [None]
  - DIZZINESS [None]
  - NAUSEA [None]
  - SEDATION [None]
  - SOMNOLENCE [None]
